FAERS Safety Report 19780426 (Version 1)
Quarter: 2021Q3

REPORT INFORMATION
  Report Type: Spontaneous
  Country: CN (occurrence: CN)
  Receive Date: 20210902
  Receipt Date: 20210902
  Transmission Date: 20211014
  Serious: Yes (Other)
  Sender: FDA-Public Use
  Company Number: CN-ASTRAZENECA-2021A695211

PATIENT
  Age: 78 Year
  Sex: Female

DRUGS (3)
  1. DIYUSHENGBAI [Concomitant]
     Indication: WHITE BLOOD CELL COUNT
  2. GEFITINIB. [Suspect]
     Active Substance: GEFITINIB
     Route: 048
     Dates: start: 20191106
  3. HUMAN GRANULOCYTE [Concomitant]
     Indication: WHITE BLOOD CELL COUNT

REACTIONS (2)
  - Intentional product misuse [Recovered/Resolved]
  - Myelosuppression [Recovered/Resolved]
